FAERS Safety Report 10036074 (Version 1)
Quarter: 2014Q1

REPORT INFORMATION
  Report Type: Spontaneous
  Country: US (occurrence: US)
  Receive Date: 20140325
  Receipt Date: 20140325
  Transmission Date: 20141002
  Serious: No
  Sender: FDA-Public Use
  Company Number: US-009507513-1403USA002086

PATIENT
  Sex: Female
  Weight: 72.56 kg

DRUGS (3)
  1. MIRALAX [Suspect]
     Indication: CONSTIPATION
     Dosage: UNK, QD
     Route: 048
     Dates: start: 201212
  2. ZOVIA [Concomitant]
  3. SYNTHROID [Concomitant]

REACTIONS (2)
  - Incorrect drug administration duration [Unknown]
  - Product quality issue [Unknown]
